FAERS Safety Report 10080822 (Version 3)
Quarter: 2020Q3

REPORT INFORMATION
  Report Type: Report from Study
  Country: US (occurrence: US)
  Receive Date: 20140416
  Receipt Date: 20140509
  Transmission Date: 20201104
  Serious: Yes (Hospitalization)
  Sender: FDA-Public Use
  Company Number: US-JNJFOC-20140407874

PATIENT
  Sex: Male
  Weight: 73.94 kg

DRUGS (16)
  1. FENTANYL. [Concomitant]
     Active Substance: FENTANYL
  2. SENNA [Concomitant]
     Active Substance: SENNA LEAF\SENNOSIDES\SENNOSIDES A AND B
     Route: 048
  3. DOCUSATE [Concomitant]
     Active Substance: DOCUSATE
     Route: 048
  4. CALCIUM CARBONATE / VITAMIN D [Concomitant]
  5. PCI32765 [Suspect]
     Active Substance: IBRUTINIB
     Indication: CHRONIC LYMPHOCYTIC LEUKAEMIA
     Route: 048
     Dates: start: 20121016, end: 201403
  6. BACTRIM DS [Concomitant]
     Active Substance: SULFAMETHOXAZOLE\TRIMETHOPRIM
  7. ALLOPURINOL. [Concomitant]
     Active Substance: ALLOPURINOL
  8. PROMETHAZINE [Concomitant]
     Active Substance: PROMETHAZINE HYDROCHLORIDE
     Route: 048
  9. AMINOCAPROIC ACID. [Concomitant]
     Active Substance: AMINOCAPROIC ACID
     Route: 048
  10. PCI32765 [Suspect]
     Active Substance: IBRUTINIB
     Indication: CHRONIC LYMPHOCYTIC LEUKAEMIA
     Route: 048
     Dates: start: 20140401
  11. MULTIVITAMINS WITH MINERALS [Concomitant]
     Active Substance: MINERALS\VITAMINS
  12. HYDROMORPHONE [Concomitant]
     Active Substance: HYDROMORPHONE
     Indication: BACK PAIN
     Route: 048
  13. HYDROMORPHONE [Concomitant]
     Active Substance: HYDROMORPHONE
     Indication: BACK PAIN
     Route: 048
  14. VALACYCLOVIR [Concomitant]
     Active Substance: VALACYCLOVIR HYDROCHLORIDE
  15. ATORVASTATIN [Concomitant]
     Active Substance: ATORVASTATIN
  16. ACTONEL [Concomitant]
     Active Substance: RISEDRONATE SODIUM

REACTIONS (1)
  - Post procedural haemorrhage [Unknown]
